FAERS Safety Report 7985863-5 (Version None)
Quarter: 2011Q4

REPORT INFORMATION
  Report Type: 
  Country: None (occurrence: None)
  Receive Date: 20111007
  Receipt Date: 20110822
  Transmission Date: 20120403
  Serious: No
  Sender: FDA-Public Use
  Company Number: 2011HGS-002299

PATIENT
  Age: 39 Year
  Sex: Female
  Weight: 152.4086 kg

DRUGS (29)
  1. ASPIRIN [Concomitant]
  2. SENOKOT (SENNA ALEXANDRINA FRUIT) (SENNA ALEXANDRINA FRUIT) [Concomitant]
  3. ACETAMINOPHEN [Concomitant]
  4. CETIRIZINE (CETIRIZINE) (CETIRIZINE) [Concomitant]
  5. BENLYSTA [Suspect]
     Indication: SYSTEMIC LUPUS ERYTHEMATOSUS
     Dosage: 10 MG/KG, 1 IN 14 D, INTRAVENOUS DRIP
     Route: 041
     Dates: start: 20110421, end: 20110421
  6. BENLYSTA [Suspect]
  7. AMBIEN [Concomitant]
  8. METHOTREXATE [Concomitant]
  9. CLONAZEPAM [Concomitant]
  10. SEROQUEL (QUETIAPINE FUMARATE) (QUETIAPINE FUMARATE) [Concomitant]
  11. VITAMIN D (ERGOCALCIFEROL) (ERGOCALCIFEROL) [Concomitant]
  12. BACLOFEN [Concomitant]
  13. PLAQUENIL (HYDROXYCHLOROQUINE SULFATE) (HYDROXYCHLOROQUINE SULFATE) [Concomitant]
  14. NEURONTIN [Concomitant]
  15. EFFEXOR (VENLAFAXINE HYDROCHLORIDE) (VENLAFAXINE HYDROCHLORIDE) [Concomitant]
  16. FOLIC ACID [Concomitant]
  17. DIFLUCAN (FLUCONAZOLE) (FLUCONAZOLE) [Concomitant]
  18. DAYPRO [Concomitant]
  19. LACTULOSE (LACTULOSE) (LACTULOSE) [Concomitant]
  20. VITAMIN B12 (CYANOCOBALAMIN) (CYANOCOBALAMIN) [Concomitant]
  21. PREDNISONE [Concomitant]
  22. ULTRACET (ULTRACET) (PARACETAMOL, TRAMADOL HYDROCHLORIDE) [Concomitant]
  23. FENTANYL [Concomitant]
  24. OXYCODONE HCL [Concomitant]
  25. FUROSEMIDE [Concomitant]
  26. MIRALAX (MACROGOL) (MACROGOL) [Concomitant]
  27. PRILOSEC (OMEPRAZOLE) (OMEPRAZOLE) [Concomitant]
  28. AZASAN (AZATHIOPRINE) (AZATHIOPRINE) [Concomitant]
  29. ABILIFY (ARIPIPRAZOLE) (ARIPIPRAZOLE) [Concomitant]

REACTIONS (14)
  - HEART RATE INCREASED [None]
  - MUSCLE TIGHTNESS [None]
  - NAUSEA [None]
  - ERYTHEMA [None]
  - TREMOR [None]
  - INFUSION SITE RASH [None]
  - VOMITING [None]
  - DIARRHOEA [None]
  - CARDIAC FLUTTER [None]
  - FEELING HOT [None]
  - HEADACHE [None]
  - INFUSION SITE SWELLING [None]
  - INFUSION SITE HAEMATOMA [None]
  - INFUSION SITE WARMTH [None]
